FAERS Safety Report 4633150-5 (Version None)
Quarter: 2005Q2

REPORT INFORMATION
  Report Type: 
  Country: None (occurrence: None)
  Receive Date: 20050412
  Receipt Date: 20050302
  Transmission Date: 20051028
  Serious: Yes (Hospitalization)
  Sender: FDA-Public Use
  Company Number: DE-GLAXOSMITHKLINE-D0046051A

PATIENT
  Age: 35 Year
  Sex: Male

DRUGS (3)
  1. LAMICTAL [Suspect]
     Indication: EPILEPSY
     Dosage: 800MG PER DAY
     Route: 048
  2. KEPPRA [Suspect]
     Indication: EPILEPSY
     Dosage: 4000MG PER DAY
     Route: 048
  3. TOPAMAX [Suspect]
     Indication: EPILEPSY
     Dosage: 1U TWICE PER DAY
     Route: 048
     Dates: start: 20020117

REACTIONS (4)
  - ABDOMINAL PAIN [None]
  - CALCULUS URETERIC [None]
  - PELVIC CONGESTION [None]
  - RENAL DISORDER [None]
